FAERS Safety Report 5407684-X (Version None)
Quarter: 2007Q3

REPORT INFORMATION
  Report Type: 
  Country: None (occurrence: None)
  Receive Date: 20070807
  Receipt Date: 20070726
  Transmission Date: 20080115
  Serious: Yes (Hospitalization, Other)
  Sender: FDA-Public Use
  Company Number: JP-PFIZER INC-2007054808

PATIENT
  Sex: Female
  Weight: 59 kg

DRUGS (6)
  1. SULPERAZON [Suspect]
     Indication: ARTHRITIS INFECTIVE
     Dosage: DAILY DOSE:2GRAM
     Route: 042
     Dates: start: 20070502, end: 20070701
  2. PANIMYCIN [Suspect]
     Indication: ARTHRITIS INFECTIVE
     Dosage: DAILY DOSE:1000MG
  3. VANCOMYCIN [Suspect]
     Indication: ARTHRITIS INFECTIVE
     Dosage: DAILY DOSE:1GRAM
  4. TARGOCID [Suspect]
     Indication: ARTHRITIS INFECTIVE
     Dosage: DAILY DOSE:400MG
     Route: 042
     Dates: start: 20070621, end: 20070701
  5. BAKTAR [Suspect]
     Indication: ARTHRITIS INFECTIVE
     Dosage: TEXT:3 TABLETS
     Route: 048
     Dates: start: 20070529, end: 20070701
  6. MYSLEE [Suspect]
     Indication: INSOMNIA
     Dosage: TEXT:1 TABLETS
     Route: 048
     Dates: start: 20070627, end: 20070701

REACTIONS (2)
  - ERYTHEMA MULTIFORME [None]
  - PYREXIA [None]
